FAERS Safety Report 15124599 (Version 1)
Quarter: 2018Q3

REPORT INFORMATION
  Report Type: Spontaneous
  Country: US (occurrence: US)
  Receive Date: 20180710
  Receipt Date: 20180710
  Transmission Date: 20181010
  Serious: No
  Sender: FDA-Public Use
  Company Number: US-PFIZER INC-2018275616

PATIENT
  Sex: Female

DRUGS (8)
  1. SEROQUEL [Concomitant]
     Active Substance: QUETIAPINE FUMARATE
     Dosage: 25 MG, 2X/DAY
  2. LEXAPRO [Concomitant]
     Active Substance: ESCITALOPRAM OXALATE
     Dosage: 10 MG, DAILY
     Route: 048
  3. LYRICA [Suspect]
     Active Substance: PREGABALIN
     Indication: ALCOHOLISM
     Dosage: 50 MG, 2X/DAY
  4. SEROQUEL [Concomitant]
     Active Substance: QUETIAPINE FUMARATE
     Dosage: 200 MG, DAILY (Q HS)
  5. CAMPRAL [Concomitant]
     Active Substance: ACAMPROSATE CALCIUM
     Dosage: 666 MG, 3X/DAY
  6. SEROQUEL [Concomitant]
     Active Substance: QUETIAPINE FUMARATE
     Dosage: 150 MG, DAILY (Q HS)
  7. SEROQUEL [Concomitant]
     Active Substance: QUETIAPINE FUMARATE
     Dosage: 300 MG, 2X/DAY
  8. ABILIFY [Concomitant]
     Active Substance: ARIPIPRAZOLE
     Dosage: 5 MG, DAILY

REACTIONS (10)
  - Pain in extremity [Unknown]
  - Arthralgia [Unknown]
  - Dizziness [Unknown]
  - Arthritis [Unknown]
  - Peripheral swelling [Unknown]
  - Hypersensitivity [Unknown]
  - Musculoskeletal pain [Unknown]
  - Swelling [Unknown]
  - Off label use [Recovered/Resolved]
  - Muscle spasms [Unknown]
